FAERS Safety Report 17168823 (Version 1)
Quarter: 2019Q4

REPORT INFORMATION
  Report Type: Report from Study
  Country: US (occurrence: US)
  Receive Date: 20191218
  Receipt Date: 20191218
  Transmission Date: 20200122
  Serious: No
  Sender: FDA-Public Use
  Company Number: NVSC2019US068706

PATIENT
  Sex: Male
  Weight: 172.37 kg

DRUGS (1)
  1. COSENTYX [Suspect]
     Active Substance: SECUKINUMAB
     Indication: ANKYLOSING SPONDYLITIS
     Route: 058
     Dates: start: 201908

REACTIONS (8)
  - Hypoaesthesia [Unknown]
  - Arthralgia [Unknown]
  - Back pain [Unknown]
  - Eye disorder [Unknown]
  - Peripheral swelling [Unknown]
  - Hyperaesthesia [Unknown]
  - Drug ineffective [Unknown]
  - Neck pain [Unknown]
